FAERS Safety Report 5715190-8 (Version None)
Quarter: 2008Q2

REPORT INFORMATION
  Report Type: 
  Country: None (occurrence: None)
  Receive Date: 20080423
  Receipt Date: 20070730
  Transmission Date: 20081010
  Serious: Yes (Disabling, Other)
  Sender: FDA-Public Use
  Company Number: DE-PFIZER INC-2007049020

PATIENT
  Sex: Male
  Weight: 104 kg

DRUGS (5)
  1. VARENICLINE TABLETS [Suspect]
     Indication: SMOKING CESSATION THERAPY
     Dosage: DAILY DOSE:2MG
     Route: 048
     Dates: start: 20061116, end: 20070207
  2. ALL OTHER THERAPEUTIC PRODUCTS [Concomitant]
     Dosage: DAILY DOSE:40MG
     Route: 048
  3. FLUVASTATIN [Concomitant]
     Dosage: DAILY DOSE:80MG
     Route: 048
     Dates: start: 19990101
  4. DILTIAZEM [Concomitant]
     Dosage: DAILY DOSE:120MG
     Route: 048
  5. ISCOVER [Concomitant]
     Dosage: DAILY DOSE:75MG
     Route: 048
     Dates: start: 20050101

REACTIONS (3)
  - GINGIVAL BLEEDING [None]
  - GINGIVAL RECESSION [None]
  - PERIODONTAL DESTRUCTION [None]
